FAERS Safety Report 23917655 (Version 2)
Quarter: 2024Q2

REPORT INFORMATION
  Report Type: Report from Study
  Country: US (occurrence: US)
  Receive Date: 20240530
  Receipt Date: 20240611
  Transmission Date: 20240716
  Serious: No
  Sender: FDA-Public Use
  Company Number: US-BRISTOL-MYERS SQUIBB COMPANY-2024-085521

PATIENT
  Age: 67 Year
  Sex: Female
  Weight: 103.42 kg

DRUGS (2)
  1. ORENCIA [Suspect]
     Active Substance: ABATACEPT
     Indication: Psoriatic arthropathy
     Route: 042
     Dates: start: 20240422
  2. ORENCIA [Suspect]
     Active Substance: ABATACEPT
     Indication: Psoriasis

REACTIONS (5)
  - Oropharyngeal pain [Unknown]
  - Cough [Unknown]
  - Respiratory tract congestion [Unknown]
  - Sinus disorder [Unknown]
  - Viral infection [Recovering/Resolving]
